FAERS Safety Report 8906353 (Version 1)
Quarter: 2012Q4

REPORT INFORMATION
  Report Type: Spontaneous
  Country: US (occurrence: None)
  Receive Date: 20121109
  Receipt Date: 20121109
  Transmission Date: 20130627
  Serious: No
  Sender: FDA-Public Use
  Company Number: None

PATIENT
  Age: 52 Year
  Sex: Female
  Weight: 61.69 kg

DRUGS (1)
  1. DIAZEPAM [Suspect]
     Indication: MUSCLE RELAXANT THERAPY
     Route: 048

REACTIONS (4)
  - Product substitution issue [None]
  - Product quality issue [None]
  - Drug effect decreased [None]
  - Product physical issue [None]
